FAERS Safety Report 9212394 (Version 1)
Quarter: 2013Q2

REPORT INFORMATION
  Report Type: Spontaneous
  Country: US (occurrence: US)
  Receive Date: 20130404
  Receipt Date: 20130404
  Transmission Date: 20140414
  Serious: Yes (Life-Threatening)
  Sender: FDA-Public Use
  Company Number: US-B.I. PHARMACEUTICALS,INC./RIDGEFIELD-2013-BI-08652BP

PATIENT
  Sex: Female

DRUGS (4)
  1. ATROVENT [Suspect]
     Indication: ASTHMA
     Route: 055
     Dates: start: 201303
  2. COMBIVENT [Suspect]
     Indication: ASTHMA
     Route: 055
  3. ASMANEX [Concomitant]
     Route: 055
  4. PROAIR [Concomitant]
     Route: 055

REACTIONS (3)
  - Apparent death [Recovered/Resolved]
  - Dyspnoea exertional [Unknown]
  - Drug effect delayed [Unknown]
